FAERS Safety Report 6766178-X (Version None)
Quarter: 2010Q2

REPORT INFORMATION
  Report Type: 
  Country: None (occurrence: None)
  Receive Date: 20100611
  Receipt Date: 20100531
  Transmission Date: 20101027
  Serious: Yes (Death)
  Sender: FDA-Public Use
  Company Number: ES-PFIZER INC-2010061427

PATIENT
  Age: 76 Year
  Sex: Female

DRUGS (3)
  1. CHAMPIX [Suspect]
     Indication: SMOKING CESSATION THERAPY
     Dosage: UNK
     Route: 048
     Dates: start: 20100510, end: 20100515
  2. PRIMPERAN [Interacting]
     Indication: DIZZINESS
     Dosage: UNK
     Dates: start: 20100515, end: 20100515
  3. AGUA DEL CARMEN [Interacting]
     Dosage: UNK
     Dates: end: 20100515

REACTIONS (4)
  - CARDIAC DEATH [None]
  - DIZZINESS [None]
  - DRUG INTERACTION [None]
  - DYSPHAGIA [None]
